FAERS Safety Report 10139103 (Version 2)
Quarter: 2014Q2

REPORT INFORMATION
  Report Type: Spontaneous
  Country: US (occurrence: US)
  Receive Date: 20140429
  Receipt Date: 20140530
  Transmission Date: 20141212
  Serious: No
  Sender: FDA-Public Use
  Company Number: US-PFIZER INC-2014116619

PATIENT
  Age: 47 Year
  Sex: Female
  Weight: 63 kg

DRUGS (6)
  1. PRISTIQ [Suspect]
     Indication: DISTURBANCE IN ATTENTION
     Dosage: 50 MG, 1X/DAY
     Route: 048
     Dates: start: 20140420
  2. PRISTIQ [Suspect]
     Indication: ASTHENIA
  3. PRISTIQ [Suspect]
     Indication: MENOPAUSE
  4. FAMOTIDINE [Concomitant]
     Indication: DYSPEPSIA
     Dosage: 20 MG, 1X/DAY
  5. TYLENOL WITH CODEINE [Concomitant]
     Indication: MIGRAINE
     Dosage: UNK, AS NEEDED
  6. DEMEROL [Concomitant]
     Indication: MIGRAINE
     Dosage: UNK

REACTIONS (1)
  - Alopecia [Not Recovered/Not Resolved]
